FAERS Safety Report 16273263 (Version 2)
Quarter: 2019Q2

REPORT INFORMATION
  Report Type: Report from Study
  Country: US (occurrence: US)
  Receive Date: 20190506
  Receipt Date: 20190523
  Transmission Date: 20190711
  Serious: Yes (Hospitalization, Other)
  Sender: FDA-Public Use
  Company Number: US-AMGEN-USASL2019061929

PATIENT
  Age: 54 Year
  Sex: Male
  Weight: 163.27 kg

DRUGS (3)
  1. PROCRIT [Suspect]
     Active Substance: ERYTHROPOIETIN
     Indication: ANAEMIA
     Dosage: UNK
     Route: 065
  2. KYPROLIS [Suspect]
     Active Substance: CARFILZOMIB
     Indication: PLASMA CELL MYELOMA
     Dosage: UNK
     Route: 065
  3. DARZALEX [Suspect]
     Active Substance: DARATUMUMAB
     Indication: PLASMA CELL MYELOMA
     Dosage: UNK
     Route: 065

REACTIONS (5)
  - Cardiac failure congestive [Unknown]
  - Nephrogenic anaemia [Not Recovered/Not Resolved]
  - Off label use [Unknown]
  - End stage renal disease [Not Recovered/Not Resolved]
  - Feeling hot [Unknown]

NARRATIVE: CASE EVENT DATE: 201904
